FAERS Safety Report 9592336 (Version 1)
Quarter: 2013Q4

REPORT INFORMATION
  Report Type: Spontaneous
  Country: US (occurrence: None)
  Receive Date: 20131003
  Receipt Date: 20131003
  Transmission Date: 20140711
  Serious: Yes (Other)
  Sender: FDA-Public Use
  Company Number: None

PATIENT
  Age: 51 Year
  Sex: Female
  Weight: 84.82 kg

DRUGS (1)
  1. SIMVASTATIN [Suspect]
     Indication: BLOOD CHOLESTEROL INCREASED

REACTIONS (7)
  - Myalgia [None]
  - Arthralgia [None]
  - Feeling hot [None]
  - Insomnia [None]
  - Fatigue [None]
  - Confusional state [None]
  - Wrong technique in drug usage process [None]
